FAERS Safety Report 7900725 (Version 8)
Quarter: 2013Q3

REPORT INFORMATION
  Report Type: Report from Study
  Country: JP (occurrence: JP)
  Receive Date: 20110415
  Receipt Date: 20130906
  Transmission Date: 20140515
  Serious: Yes (Hospitalization, Other)
  Sender: FDA-Public Use
  Company Number: JP-CELGENEUS-087-21880-11012821

PATIENT
  Age: 57 Year
  Sex: Male

DRUGS (51)
  1. REVLIMID [Suspect]
     Dosage: 25 MILLIGRAM
     Route: 048
     Dates: start: 20110323, end: 20110329
  2. REVLIMID [Suspect]
     Dosage: 25 MILLIGRAM
     Route: 048
     Dates: start: 20110406, end: 20110412
  3. REVLIMID [Suspect]
     Dosage: 15 MILLIGRAM
     Route: 048
     Dates: start: 20110420, end: 20110426
  4. REVLIMID [Suspect]
     Dosage: 15 MILLIGRAM
     Route: 048
     Dates: start: 20110511, end: 20110531
  5. REVLIMID [Suspect]
     Dosage: 15 MILLIGRAM
     Route: 048
     Dates: start: 20110608, end: 20110628
  6. REVLIMID [Suspect]
     Dosage: 15 MILLIGRAM
     Route: 048
     Dates: start: 20110706, end: 20110726
  7. REVLIMID [Suspect]
     Dosage: 15 MILLIGRAM
     Route: 048
     Dates: start: 20110803, end: 20110804
  8. REVLIMID [Suspect]
     Dosage: 15 MILLIGRAM
     Route: 048
     Dates: start: 20110907, end: 20110913
  9. REVLIMID [Suspect]
     Dosage: 15 MILLIGRAM
     Route: 048
     Dates: start: 20110921, end: 20111011
  10. REVLIMID [Suspect]
     Dosage: 15 MILLIGRAM
     Route: 048
     Dates: start: 20111026, end: 20111108
  11. REVLIMID [Suspect]
     Dosage: 10 MILLIGRAM
     Route: 048
     Dates: start: 20111123, end: 20111206
  12. REVLIMID [Suspect]
     Dosage: 10 MILLIGRAM
     Route: 048
     Dates: start: 20111221, end: 20120110
  13. REVLIMID [Suspect]
     Dosage: 10 MILLIGRAM
     Route: 048
     Dates: start: 20120118, end: 20120207
  14. REVLIMID [Suspect]
     Dosage: 10 MILLIGRAM
     Route: 048
     Dates: start: 20120222, end: 20120313
  15. LENADEX [Suspect]
     Indication: PLASMA CELL MYELOMA
     Dosage: 12 MILLIGRAM
     Route: 048
     Dates: start: 20101125, end: 20101214
  16. LENADEX [Suspect]
     Dosage: 12 MILLIGRAM
     Route: 048
     Dates: start: 20101223, end: 20110106
  17. LENADEX [Suspect]
     Dosage: 12 MILLIGRAM
     Route: 048
     Dates: start: 20110127, end: 20110127
  18. LENADEX [Suspect]
     Dosage: 12 MILLIGRAM
     Route: 048
     Dates: start: 20110203, end: 20110210
  19. LENADEX [Suspect]
     Dosage: 12 MILLIGRAM
     Route: 048
     Dates: start: 20110223, end: 20110323
  20. LENADEX [Suspect]
     Dosage: 12 MILLIGRAM
     Route: 048
     Dates: start: 20110406, end: 20110406
  21. LENADEX [Suspect]
     Dosage: 12 MILLIGRAM
     Route: 048
     Dates: start: 20110420, end: 20110420
  22. LENADEX [Suspect]
     Dosage: 12 MILLIGRAM
     Route: 048
     Dates: start: 20110511, end: 20110525
  23. LENADEX [Suspect]
     Dosage: 12 MILLIGRAM
     Route: 048
     Dates: start: 20110608, end: 20110628
  24. LENADEX [Suspect]
     Dosage: 12 MILLIGRAM
     Route: 048
     Dates: start: 20110706, end: 20110726
  25. LENADEX [Suspect]
     Dosage: 12 MILLIGRAM
     Route: 048
     Dates: start: 20110803, end: 20110809
  26. LENADEX [Suspect]
     Dosage: 12 MILLIGRAM
     Route: 048
     Dates: start: 20110907, end: 20110913
  27. LENADEX [Suspect]
     Dosage: 12 MILLIGRAM
     Route: 048
     Dates: start: 20110921, end: 20111011
  28. LENADEX [Suspect]
     Dosage: 12 MILLIGRAM
     Route: 048
     Dates: start: 20111026, end: 20111108
  29. LENADEX [Suspect]
     Dosage: 12 MILLIGRAM
     Route: 048
     Dates: start: 20111123, end: 20111206
  30. LENADEX [Suspect]
     Dosage: 12 MILLIGRAM
     Route: 048
     Dates: start: 20111221, end: 20120110
  31. LENADEX [Suspect]
     Route: 048
     Dates: start: 20120118, end: 20120207
  32. LENADEX [Suspect]
     Dosage: 12 MILLIGRAM
     Route: 048
     Dates: start: 20120222, end: 20120313
  33. BAKTAR [Suspect]
     Indication: PROPHYLAXIS
     Route: 048
     Dates: start: 20100430, end: 20110111
  34. BAKTAR [Suspect]
     Route: 048
     Dates: start: 20110126
  35. GASTER D [Suspect]
     Indication: PROPHYLAXIS
     Route: 048
     Dates: start: 20101117, end: 20110111
  36. GASTER D [Suspect]
     Route: 048
     Dates: start: 20110126
  37. MUCOSTA [Concomitant]
     Indication: PROPHYLAXIS
     Route: 048
     Dates: start: 20110114, end: 20110121
  38. MUCOSTA [Concomitant]
     Dosage: 100 MILLIGRAM
     Route: 048
     Dates: start: 20111221
  39. NISSEKI POLYGLOBIN-N [Concomitant]
     Indication: PROPHYLAXIS
     Route: 041
     Dates: start: 20101222, end: 20101222
  40. NISSEKI POLYGLOBIN-N [Concomitant]
     Indication: HYPOGAMMAGLOBULINAEMIA
     Route: 041
     Dates: start: 20110323, end: 20110323
  41. GENINAX [Concomitant]
     Indication: PROPHYLAXIS
     Route: 048
     Dates: start: 20110126, end: 20110315
  42. BAYASPIRIN [Concomitant]
     Indication: PROPHYLAXIS
     Route: 048
     Dates: start: 20110202
  43. ZOVIRAX [Concomitant]
     Indication: PROPHYLAXIS
     Route: 048
     Dates: start: 20110217, end: 20110315
  44. ZOVIRAX [Concomitant]
     Route: 048
     Dates: start: 20110323, end: 20110418
  45. ZOVIRAX [Concomitant]
     Route: 048
     Dates: start: 20110601
  46. URSO [Concomitant]
     Indication: PROPHYLAXIS
     Route: 048
     Dates: start: 20101208
  47. MYCOSYST [Concomitant]
     Indication: PROPHYLAXIS
     Route: 048
     Dates: start: 20111221
  48. REVLIMID [Suspect]
     Indication: PLASMA CELL MYELOMA
     Dosage: 25 MILLIGRAM
     Route: 048
     Dates: start: 20101124, end: 20101214
  49. REVLIMID [Suspect]
     Dosage: 25 MILLIGRAM
     Route: 048
     Dates: start: 20101222, end: 20110111
  50. REVLIMID [Suspect]
     Dosage: 25 MILLIGRAM
     Route: 048
     Dates: start: 20110126, end: 20110215
  51. REVLIMID [Suspect]
     Dosage: 25 MILLIGRAM
     Route: 048
     Dates: start: 20110223, end: 20110315

REACTIONS (22)
  - Hepatobiliary disease [Recovered/Resolved]
  - Bronchopneumonia [Recovered/Resolved]
  - Neutropenia [Not Recovered/Not Resolved]
  - Thrombocytopenia [Not Recovered/Not Resolved]
  - Alanine aminotransferase increased [Recovered/Resolved]
  - Gamma-glutamyltransferase increased [Recovered/Resolved]
  - Influenza [Recovered/Resolved]
  - Platelet count decreased [Recovered/Resolved]
  - Neutrophil count decreased [Recovered/Resolved]
  - White blood cell count decreased [Recovered/Resolved]
  - White blood cell count decreased [Recovered/Resolved]
  - Bronchitis [Recovered/Resolved]
  - Liver disorder [Not Recovered/Not Resolved]
  - White blood cell count decreased [Recovered/Resolved]
  - White blood cell count decreased [Recovered/Resolved]
  - White blood cell count decreased [Recovered/Resolved]
  - White blood cell count decreased [Recovered/Resolved]
  - Neutrophil count decreased [Recovered/Resolved]
  - Neutrophil count decreased [Recovered/Resolved]
  - Haemoglobin decreased [Recovered/Resolved]
  - Haemoglobin decreased [Recovered/Resolved]
  - Bronchitis [Recovered/Resolved]
